FAERS Safety Report 6867141-0 (Version None)
Quarter: 2010Q3

REPORT INFORMATION
  Report Type: 
  Country: None (occurrence: None)
  Receive Date: 20100722
  Receipt Date: 20100713
  Transmission Date: 20110219
  Serious: Yes (Hospitalization)
  Sender: FDA-Public Use
  Company Number: A0871542A

PATIENT
  Age: 55 Year
  Sex: Female
  Weight: 113.6 kg

DRUGS (7)
  1. LAMICTAL [Suspect]
     Route: 048
     Dates: start: 20100501, end: 20100601
  2. ZOLOFT [Suspect]
     Indication: DEPRESSION
     Route: 048
     Dates: start: 20100501, end: 20100601
  3. LEVOTHYROXINE SODIUM [Concomitant]
  4. MONTELUKAST [Concomitant]
  5. PROTONIX [Concomitant]
  6. PREDNISONE [Concomitant]
     Dosage: 10MG PER DAY
  7. VALIUM [Concomitant]
     Indication: ANXIETY

REACTIONS (3)
  - FALL [None]
  - GAIT DISTURBANCE [None]
  - SUICIDAL IDEATION [None]
